FAERS Safety Report 7637817-6 (Version None)
Quarter: 2011Q3

REPORT INFORMATION
  Report Type: 
  Country: None (occurrence: None)
  Receive Date: 20110720
  Receipt Date: 20110708
  Transmission Date: 20111222
  Serious: Yes (Death, Other)
  Sender: FDA-Public Use
  Company Number: 2010AC000211

PATIENT
  Age: 37 Year
  Sex: Male

DRUGS (7)
  1. DIGOXIN [Suspect]
     Indication: CARDIAC FIBRILLATION
     Dosage: 0.125 MG ;QD;PO
     Route: 048
     Dates: start: 20061219, end: 20080315
  2. ENALAPRIL MALEATE [Concomitant]
  3. METOPROLOL TARTRATE [Concomitant]
  4. COREG [Concomitant]
  5. SPIRONOLACTONE [Concomitant]
  6. KLOR-CON [Concomitant]
  7. FUROSEMIDE [Concomitant]

REACTIONS (18)
  - ECONOMIC PROBLEM [None]
  - MULTIPLE INJURIES [None]
  - ATRIOVENTRICULAR BLOCK FIRST DEGREE [None]
  - DYSPNOEA [None]
  - CONFUSIONAL STATE [None]
  - CONGESTIVE CARDIOMYOPATHY [None]
  - OEDEMA PERIPHERAL [None]
  - ABDOMINAL PAIN UPPER [None]
  - NAUSEA [None]
  - SINUS TACHYCARDIA [None]
  - CARDIO-RESPIRATORY ARREST [None]
  - BLOOD PRESSURE INCREASED [None]
  - VOMITING [None]
  - JAUNDICE [None]
  - VENTRICULAR TACHYCARDIA [None]
  - HEPATIC ENZYME INCREASED [None]
  - HYPOXIA [None]
  - CONVULSION [None]
